FAERS Safety Report 17376389 (Version 1)
Quarter: 2020Q1

REPORT INFORMATION
  Report Type: Spontaneous
  Country: US (occurrence: US)
  Receive Date: 20200206
  Receipt Date: 20200206
  Transmission Date: 20200409
  Serious: Yes (Other)
  Sender: FDA-Public Use
  Company Number: US-SUN PHARMACEUTICAL INDUSTRIES LTD-2020R1-235897

PATIENT
  Age: 11 Year
  Sex: Female

DRUGS (2)
  1. SPIRONOLACTONE. [Suspect]
     Active Substance: SPIRONOLACTONE
     Indication: BREAST HYPOPLASIA
  2. SPIRONOLACTONE. [Suspect]
     Active Substance: SPIRONOLACTONE
     Indication: BECKER^S NAEVUS
     Dosage: 100 MILLIGRAM, DAILY
     Route: 065

REACTIONS (1)
  - Menorrhagia [Recovered/Resolved]
